FAERS Safety Report 24397865 (Version 6)
Quarter: 2025Q1

REPORT INFORMATION
  Report Type: Spontaneous
  Country: US (occurrence: US)
  Receive Date: 20241004
  Receipt Date: 20250220
  Transmission Date: 20250409
  Serious: No
  Sender: PFIZER
  Company Number: US-PFIZER INC-PV202400129336

PATIENT
  Age: 70 Year
  Sex: Female

DRUGS (1)
  1. IBRANCE [Suspect]
     Active Substance: PALBOCICLIB

REACTIONS (5)
  - Gastrointestinal sounds abnormal [Unknown]
  - Menopausal symptoms [Not Recovered/Not Resolved]
  - Dry skin [Unknown]
  - White blood cell count decreased [Unknown]
  - Diarrhoea [Recovered/Resolved]
